FAERS Safety Report 23970806 (Version 2)
Quarter: 2024Q3

REPORT INFORMATION
  Report Type: Report from Study
  Country: US (occurrence: US)
  Receive Date: 20240613
  Receipt Date: 20240712
  Transmission Date: 20241017
  Serious: Yes (Hospitalization)
  Sender: ASTELLAS
  Company Number: US-ASTELLAS-2024US016705

PATIENT
  Sex: Male

DRUGS (2)
  1. ENZALUTAMIDE [Suspect]
     Active Substance: ENZALUTAMIDE
     Indication: Prostate cancer
     Route: 048
     Dates: start: 20240423
  2. ENZALUTAMIDE [Suspect]
     Active Substance: ENZALUTAMIDE
     Dosage: 40 MG, ONCE DAILY (QPM)
     Route: 048
     Dates: start: 20240530

REACTIONS (7)
  - Balance disorder [Unknown]
  - Brain fog [Unknown]
  - Gastrointestinal disorder [Unknown]
  - Back pain [Unknown]
  - Constipation [Unknown]
  - Blood pressure increased [Unknown]
  - Decreased appetite [Unknown]
